FAERS Safety Report 8284125-9 (Version None)
Quarter: 2012Q2

REPORT INFORMATION
  Report Type: 
  Country: None (occurrence: None)
  Receive Date: 20120413
  Receipt Date: 20111209
  Transmission Date: 20120825
  Serious: No
  Sender: FDA-Public Use
  Company Number: US-ASTRAZENECA-2011SE75146

PATIENT
  Age: 81 Year

DRUGS (2)
  1. NEXIUM [Suspect]
     Route: 048
  2. RISPERIDONE [Concomitant]

REACTIONS (6)
  - DIABETES MELLITUS [None]
  - CARDIAC DISORDER [None]
  - CARDIAC FAILURE CONGESTIVE [None]
  - GASTROOESOPHAGEAL REFLUX DISEASE [None]
  - IMPAIRED SELF-CARE [None]
  - DEMENTIA ALZHEIMER'S TYPE [None]
